FAERS Safety Report 20506157 (Version 1)
Quarter: 2022Q1

REPORT INFORMATION
  Report Type: Spontaneous
  Country: US (occurrence: None)
  Receive Date: 20220222
  Receipt Date: 20220222
  Transmission Date: 20220424
  Serious: Yes (Death)
  Sender: FDA-Public Use
  Company Number: None

PATIENT
  Age: 59 Year
  Sex: Male
  Weight: 105.69 kg

DRUGS (1)
  1. DEFERASIROX [Suspect]
     Active Substance: DEFERASIROX
     Indication: Haemochromatosis
     Dosage: FREQUENCY : DAILY;?
     Route: 048
     Dates: start: 20210223, end: 202202

REACTIONS (2)
  - Lymphocytic leukaemia [None]
  - Disease complication [None]

NARRATIVE: CASE EVENT DATE: 20220201
